FAERS Safety Report 7810510-2 (Version None)
Quarter: 2011Q4

REPORT INFORMATION
  Report Type: 
  Country: None (occurrence: None)
  Receive Date: 20111012
  Receipt Date: 20111005
  Transmission Date: 20120403
  Serious: Yes (Disabling, Other)
  Sender: FDA-Public Use
  Company Number: US-CELGENEUS-163-20785-11092518

PATIENT
  Sex: Male
  Weight: 95.794 kg

DRUGS (2)
  1. THALOMID [Suspect]
     Indication: MULTIPLE MYELOMA
     Dosage: 50 MILLIGRAM
     Route: 048
     Dates: start: 20091106, end: 20110808
  2. COUMADIN [Concomitant]
     Dosage: 8MG-7MG
     Route: 065

REACTIONS (2)
  - STRESS FRACTURE [None]
  - NEUROPATHY PERIPHERAL [None]
